FAERS Safety Report 4610754-7 (Version None)
Quarter: 2005Q2

REPORT INFORMATION
  Report Type: 
  Country: None (occurrence: None)
  Receive Date: 20050301
  Receipt Date: 20041213
  Transmission Date: 20051028
  Serious: No
  Sender: FDA-Public Use
  Company Number: WAES 0412USA01619

PATIENT
  Age: 55 Year
  Sex: Male

DRUGS (1)
  1. ZETIA [Suspect]
     Dosage: 20 MG/DAILY/PO
     Route: 048

REACTIONS (2)
  - NO ADVERSE EFFECT [None]
  - PRESCRIBED OVERDOSE [None]
